FAERS Safety Report 4391807-8 (Version None)
Quarter: 2004Q3

REPORT INFORMATION
  Report Type: 
  Country: None (occurrence: None)
  Receive Date: 20040701
  Receipt Date: 20040617
  Transmission Date: 20050211
  Serious: Yes (Hospitalization, Other)
  Sender: FDA-Public Use
  Company Number: 2004-06-0924

PATIENT
  Age: 67 Year
  Sex: Male

DRUGS (3)
  1. PEG-INTRON [Suspect]
     Indication: HEPATITIS C
     Dosage: SUBCUTANEOUS
     Route: 058
     Dates: start: 20030806, end: 20040616
  2. AVANDIA [Concomitant]
  3. SPIRONOLACTONE TABLETS [Concomitant]

REACTIONS (8)
  - ANAEMIA [None]
  - APHASIA [None]
  - ASPARTATE AMINOTRANSFERASE INCREASED [None]
  - CEREBRAL ARTERITIS [None]
  - CEREBRAL INFARCTION [None]
  - LEUKOENCEPHALOMYELITIS [None]
  - LEUKOPENIA [None]
  - PLATELET COUNT DECREASED [None]
